FAERS Safety Report 6772944-7 (Version None)
Quarter: 2010Q2

REPORT INFORMATION
  Report Type: 
  Country: None (occurrence: None)
  Receive Date: 20100616
  Receipt Date: 20100610
  Transmission Date: 20101027
  Serious: Yes (Other)
  Sender: FDA-Public Use
  Company Number: US-ELI_LILLY_AND_COMPANY-US201006003201

PATIENT
  Sex: Female

DRUGS (6)
  1. HUMALOG [Suspect]
     Indication: TYPE 2 DIABETES MELLITUS
     Dosage: 25 U, 4/D
  2. GLUCOPHAGE [Concomitant]
  3. LANTUS [Concomitant]
  4. VITAMINS [Concomitant]
  5. LIPITOR [Concomitant]
  6. LEVOTHYROXINE SODIUM [Concomitant]

REACTIONS (9)
  - BLOOD GLUCOSE DECREASED [None]
  - BLOOD GLUCOSE INCREASED [None]
  - CATARACT [None]
  - FEAR [None]
  - LOSS OF CONSCIOUSNESS [None]
  - RENAL FAILURE [None]
  - SOMNOLENCE [None]
  - STRESS [None]
  - VISUAL IMPAIRMENT [None]
